FAERS Safety Report 8443649-1 (Version None)
Quarter: 2012Q2

REPORT INFORMATION
  Report Type: 
  Country: None (occurrence: None)
  Receive Date: 20120618
  Receipt Date: 20120608
  Transmission Date: 20120825
  Serious: Yes (Other)
  Sender: FDA-Public Use
  Company Number: CA-JNJFOC-20120605022

PATIENT
  Sex: Female
  Weight: 49 kg

DRUGS (3)
  1. REMICADE [Suspect]
     Indication: RHEUMATOID ARTHRITIS
     Route: 042
     Dates: start: 20120229
  2. ACETAMINOPHEN [Concomitant]
     Route: 048
  3. BENADRYL [Concomitant]
     Route: 042

REACTIONS (3)
  - DYSPNOEA [None]
  - INFUSION RELATED REACTION [None]
  - AUTONOMIC NERVOUS SYSTEM IMBALANCE [None]
